FAERS Safety Report 4420564-1 (Version None)
Quarter: 2004Q3

REPORT INFORMATION
  Report Type: 
  Country: None (occurrence: None)
  Receive Date: 20040809
  Receipt Date: 20040331
  Transmission Date: 20050211
  Serious: No
  Sender: FDA-Public Use
  Company Number: US-GLAXOSMITHKLINE-A0505393A

PATIENT
  Age: 19 Year
  Sex: Female

DRUGS (1)
  1. PAXIL CR [Suspect]
     Indication: DEPRESSION
     Dosage: 12.5MG PER DAY
     Route: 048
     Dates: start: 20040325, end: 20040325

REACTIONS (7)
  - AGGRESSION [None]
  - AGITATION [None]
  - CRYING [None]
  - DIZZINESS [None]
  - EUPHORIC MOOD [None]
  - LOSS OF CONSCIOUSNESS [None]
  - MOOD SWINGS [None]
